FAERS Safety Report 9330134 (Version 3)
Quarter: 2013Q3

REPORT INFORMATION
  Report Type: Spontaneous
  Country: US (occurrence: US)
  Receive Date: 20130604
  Receipt Date: 20130726
  Transmission Date: 20140515
  Serious: Yes (Other)
  Sender: FDA-Public Use
  Company Number: US-PFIZER INC-2013166245

PATIENT
  Age: 68 Year
  Sex: Female
  Weight: 49.43 kg

DRUGS (3)
  1. PREMARIN [Suspect]
     Indication: ATROPHIC VULVOVAGINITIS
     Dosage: 0.625 MG, 3X/WEEK
     Route: 067
     Dates: start: 2010, end: 2013
  2. PREMARIN [Suspect]
     Indication: VULVOVAGINAL DRYNESS
  3. ALPRAZOLAM [Concomitant]
     Indication: STRESS
     Dosage: 0.25 MG, AS NEEDED

REACTIONS (5)
  - Urinary tract infection [Recovered/Resolved]
  - Blood pressure abnormal [Unknown]
  - Blood cholesterol abnormal [Unknown]
  - Scar [Not Recovered/Not Resolved]
  - Discomfort [Unknown]
